FAERS Safety Report 17181330 (Version 2)
Quarter: 2020Q2

REPORT INFORMATION
  Report Type: Spontaneous
  Country: AT (occurrence: AT)
  Receive Date: 20191219
  Receipt Date: 20200514
  Transmission Date: 20200713
  Serious: Yes (Death, Other)
  Sender: FDA-Public Use
  Company Number: AT-ELI_LILLY_AND_COMPANY-AT201912007149

PATIENT
  Age: 70 Year
  Sex: Female

DRUGS (2)
  1. RAMUCIRUMAB [Suspect]
     Active Substance: RAMUCIRUMAB
     Indication: ADENOCARCINOMA GASTRIC
     Dosage: UNK, EVERY TWO WEEKS
     Route: 065
     Dates: start: 201703
  2. PACLITAXEL. [Concomitant]
     Active Substance: PACLITAXEL
     Indication: ADENOCARCINOMA GASTRIC
     Dosage: UNK, DAY 1, 8, 15
     Dates: start: 201908

REACTIONS (5)
  - General physical health deterioration [Unknown]
  - Malignant neoplasm progression [Unknown]
  - Polyneuropathy [Unknown]
  - Malignant neoplasm progression [Unknown]
  - Death [Fatal]

NARRATIVE: CASE EVENT DATE: 201810
